FAERS Safety Report 13277308 (Version 3)
Quarter: 2017Q3

REPORT INFORMATION
  Report Type: Report from Study
  Country: None (occurrence: US)
  Receive Date: 20170228
  Receipt Date: 20170719
  Transmission Date: 20171127
  Serious: Yes (Hospitalization)
  Sender: FDA-Public Use
  Company Number: US-ABBVIE-17K-163-1885268-00

PATIENT
  Age: 62 Year
  Sex: Male
  Weight: 113.5 kg

DRUGS (4)
  1. TRAJENTA [Concomitant]
     Active Substance: LINAGLIPTIN
     Indication: DIABETES MELLITUS
  2. METFORMIN [Concomitant]
     Active Substance: METFORMIN HYDROCHLORIDE
     Indication: DIABETES MELLITUS
  3. LISINOPRIL. [Concomitant]
     Active Substance: LISINOPRIL
     Indication: BLOOD CREATININE INCREASED
  4. HUMIRA [Suspect]
     Active Substance: ADALIMUMAB
     Indication: RHEUMATOID ARTHRITIS
     Route: 058
     Dates: start: 20160805

REACTIONS (14)
  - Supraventricular tachycardia [Recovered/Resolved]
  - Joint swelling [Unknown]
  - Headache [Recovered/Resolved]
  - Arthralgia [Unknown]
  - Injection site pain [Recovered/Resolved]
  - Gait disturbance [Unknown]
  - Incorrect dose administered [Unknown]
  - Hypoaesthesia [Unknown]
  - Joint stiffness [Unknown]
  - Wrong technique in product usage process [Unknown]
  - Thrombosis [Recovered/Resolved]
  - Anxiety [Unknown]
  - Musculoskeletal pain [Unknown]
  - Blood creatine increased [Recovered/Resolved]

NARRATIVE: CASE EVENT DATE: 2016
